FAERS Safety Report 9560053 (Version 1)
Quarter: 2013Q3

REPORT INFORMATION
  Report Type: Spontaneous
  Country: GB (occurrence: None)
  Receive Date: 20130925
  Receipt Date: 20130925
  Transmission Date: 20140515
  Serious: Yes (Hospitalization, Other)
  Sender: FDA-Public Use
  Company Number: GB-MACLEODS PHARMA-000134

PATIENT
  Age: 67 Year
  Sex: Female

DRUGS (2)
  1. LEVOFLOXACIN [Suspect]
     Indication: CELLULITIS
     Route: 048
     Dates: start: 201210, end: 20121029
  2. ERYTHROMYCIN [Suspect]
     Indication: CELLULITIS
     Route: 048
     Dates: start: 201210

REACTIONS (8)
  - Treatment failure [None]
  - Pyrexia [None]
  - Local swelling [None]
  - Erythema [None]
  - Tenderness [None]
  - Malaise [None]
  - Cellulitis [None]
  - Disease progression [None]
